FAERS Safety Report 7445329-8 (Version None)
Quarter: 2011Q2

REPORT INFORMATION
  Report Type: 
  Country: None (occurrence: None)
  Receive Date: 20110429
  Receipt Date: 20100720
  Transmission Date: 20111010
  Serious: No
  Sender: FDA-Public Use
  Company Number: A0871404A

PATIENT
  Sex: Female

DRUGS (1)
  1. ZOFRAN [Suspect]
     Route: 042

REACTIONS (2)
  - PRURITUS [None]
  - URTICARIA [None]
